FAERS Safety Report 12630682 (Version 2)
Quarter: 2016Q3

REPORT INFORMATION
  Report Type: Spontaneous
  Country: US (occurrence: US)
  Receive Date: 20160808
  Receipt Date: 20160915
  Transmission Date: 20161109
  Serious: No
  Sender: FDA-Public Use
  Company Number: US-ELI_LILLY_AND_COMPANY-US201608002134

PATIENT
  Age: 70 Year
  Sex: Female

DRUGS (2)
  1. HUMALOG [Suspect]
     Active Substance: INSULIN LISPRO
     Indication: DIABETES MELLITUS
     Dosage: UP TO 60 U, ON A SLIDING SCALE
     Route: 065
     Dates: start: 201604
  2. TOUJEO [Concomitant]
     Active Substance: INSULIN GLARGINE

REACTIONS (10)
  - Drug ineffective [Recovering/Resolving]
  - Blood glucose abnormal [Unknown]
  - Depressed mood [Unknown]
  - Drug dose omission [Unknown]
  - Mobility decreased [Unknown]
  - Blood glucose decreased [Unknown]
  - Visual acuity reduced [Not Recovered/Not Resolved]
  - Blood glucose increased [Recovering/Resolving]
  - Emotional disorder [Unknown]
  - Blood glucose increased [Unknown]

NARRATIVE: CASE EVENT DATE: 20160731
